FAERS Safety Report 8838750 (Version 4)
Quarter: 2014Q2

REPORT INFORMATION
  Report Type: Spontaneous
  Country: US (occurrence: US)
  Receive Date: 20121012
  Receipt Date: 20140520
  Transmission Date: 20141212
  Serious: Yes (Hospitalization, Disabling, Other)
  Sender: FDA-Public Use
  Company Number: US-009507513-1205USA00984

PATIENT
  Sex: Female

DRUGS (4)
  1. MK-0000 [Suspect]
     Indication: OSTEOPENIA
     Dosage: 35 MG, UNK
     Route: 048
     Dates: start: 200203, end: 2005
  2. ACTONEL [Suspect]
     Dosage: 35 MG, QW
     Route: 048
     Dates: start: 200804, end: 201002
  3. ALENDRONATE SODIUM [Suspect]
     Dosage: 35 MG, UNK
  4. FOSAMAX [Suspect]
     Dosage: UNK, QW
     Route: 048
     Dates: start: 20091120

REACTIONS (76)
  - Femur fracture [Unknown]
  - Intramedullary rod insertion [Unknown]
  - Femur fracture [Unknown]
  - Femur fracture [Not Recovered/Not Resolved]
  - Renal failure chronic [Not Recovered/Not Resolved]
  - Renal failure chronic [Not Recovered/Not Resolved]
  - Gastric ulcer perforation [Unknown]
  - Gastric operation [Unknown]
  - Femur fracture [Unknown]
  - Myocardial infarction [Unknown]
  - Humerus fracture [Unknown]
  - Intramedullary rod insertion [Unknown]
  - Intramedullary rod insertion [Unknown]
  - Spinal fusion surgery [Unknown]
  - Abdominal operation [Unknown]
  - Humerus fracture [Unknown]
  - Shoulder arthroplasty [Unknown]
  - Infection [Unknown]
  - Spinal fusion surgery [Unknown]
  - Intestinal obstruction [Unknown]
  - Gastric ulcer [Unknown]
  - Sciatica [Unknown]
  - Intervertebral disc protrusion [Unknown]
  - Meniscus injury [Unknown]
  - Fall [Unknown]
  - Rheumatoid arthritis [Unknown]
  - Bursitis [Unknown]
  - Hypothyroidism [Unknown]
  - Fibromyalgia [Unknown]
  - Hypoaesthesia [Unknown]
  - Hypertension [Unknown]
  - Anxiety [Not Recovered/Not Resolved]
  - Spinal column stenosis [Unknown]
  - Osteoarthritis [Unknown]
  - Depression [Not Recovered/Not Resolved]
  - Hypercholesterolaemia [Unknown]
  - Insomnia [Unknown]
  - Irritable bowel syndrome [Unknown]
  - Intervertebral disc disorder [Unknown]
  - Neuralgia [Unknown]
  - Joint dislocation [Unknown]
  - Hyperthyroidism [Unknown]
  - Spondylolisthesis [Unknown]
  - Device failure [Unknown]
  - Fracture nonunion [Unknown]
  - Bunion operation [Unknown]
  - Vitamin D deficiency [Unknown]
  - Foot fracture [Unknown]
  - Adverse event [Unknown]
  - Irritability [Unknown]
  - Adverse event [Unknown]
  - Calcium deficiency [Unknown]
  - Muscle strain [Unknown]
  - Bursitis [Unknown]
  - Arthritis bacterial [Unknown]
  - Haemorrhagic anaemia [Unknown]
  - Libido decreased [Unknown]
  - Gastric disorder [Unknown]
  - Soft tissue disorder [Unknown]
  - Arteriosclerosis coronary artery [Unknown]
  - Anaemia [Unknown]
  - Oedema [Unknown]
  - Fatigue [Unknown]
  - Lumbar radiculopathy [Unknown]
  - Lyme disease [Unknown]
  - Postmenopausal haemorrhage [Unknown]
  - Post procedural hypothyroidism [Unknown]
  - Thyroid neoplasm [Unknown]
  - Urinary tract infection [Unknown]
  - Hernia repair [Unknown]
  - Depression [Unknown]
  - Uterine cervix stenosis [Unknown]
  - Arthralgia [Unknown]
  - Back pain [Not Recovered/Not Resolved]
  - Pain in extremity [Unknown]
  - Drug ineffective [Unknown]
